FAERS Safety Report 9532973 (Version 1)
Quarter: 2013Q2

REPORT INFORMATION
  Report Type: Spontaneous
  Country: US (occurrence: None)
  Receive Date: 20130418
  Receipt Date: 20130418
  Transmission Date: 20140414
  Serious: Yes (Other)
  Sender: FDA-Public Use
  Company Number: 2012PROUSA02361

PATIENT
  Age: 80 Year
  Sex: Male
  Weight: 104.5 kg

DRUGS (13)
  1. PROVENGE [Suspect]
     Indication: PROSTATE CANCER METASTATIC
     Dosage: 250 ML, SINGLE, INTRAVENOUS
     Route: 042
     Dates: start: 20121126, end: 20121126
  2. LASIX (FUROSEMIDE) [Concomitant]
  3. POTASSIUM CHLORIDE (POTASSIUM CHLORIDE) [Concomitant]
  4. LORATIDINE [Concomitant]
  5. EFFEXOR (VENLAFAXINE HYDROCHLORIDE) UNKNOWN [Concomitant]
  6. PLAVIX (CLOPIDOGREL BISULFATE) [Concomitant]
  7. SIMVASTATIN (SIMVASTATIN) [Concomitant]
  8. ZANTAC (RANITIDINE HYDROCHLORIDE) [Concomitant]
  9. LYRICA (PREGABALIN) [Concomitant]
  10. NILUTAMIDE (NILUTAMIDE) [Concomitant]
  11. ZOMETA (ZOLEDRONIC ACID) [Concomitant]
  12. MULTIVITAMIN (VITAMINS NOS) [Concomitant]
  13. ALLI (ORLISTAT) [Concomitant]

REACTIONS (1)
  - Bacteraemia [None]
